FAERS Safety Report 13772505 (Version 1)
Quarter: 2017Q3

REPORT INFORMATION
  Report Type: Spontaneous
  Country: US (occurrence: US)
  Receive Date: 20170720
  Receipt Date: 20170720
  Transmission Date: 20171127
  Serious: No
  Sender: FDA-Public Use
  Company Number: US-GLAXOSMITHKLINE-US2017111577

PATIENT
  Age: 31 Year
  Sex: Female

DRUGS (7)
  1. BUPROPION. [Concomitant]
     Active Substance: BUPROPION
  2. TOPIRAMATE. [Concomitant]
     Active Substance: TOPIRAMATE
  3. TRETINOIN. [Concomitant]
     Active Substance: TRETINOIN
  4. ALPRAZOLAM. [Concomitant]
     Active Substance: ALPRAZOLAM
  5. LAMICTAL [Suspect]
     Active Substance: LAMOTRIGINE
     Indication: PRODUCT USED FOR UNKNOWN INDICATION
     Dosage: 150 MG, QD
     Dates: start: 2016
  6. RANITIDINE. [Concomitant]
     Active Substance: RANITIDINE
  7. FLUOXETINE [Concomitant]
     Active Substance: FLUOXETINE HYDROCHLORIDE

REACTIONS (3)
  - Rash erythematous [Unknown]
  - Rash papular [Unknown]
  - Chloasma [Unknown]

NARRATIVE: CASE EVENT DATE: 201706
